FAERS Safety Report 8611938-3 (Version None)
Quarter: 2012Q3

REPORT INFORMATION
  Report Type: 
  Country: None (occurrence: None)
  Receive Date: 20120822
  Receipt Date: 20120811
  Transmission Date: 20120928
  Serious: No
  Sender: FDA-Public Use
  Company Number: US-ASTRAZENECA-2012SE57088

PATIENT
  Age: 55 Year
  Sex: Female

DRUGS (7)
  1. TOPROL-XL [Suspect]
     Route: 048
  2. VITAMIN B COMPLEX CAP [Concomitant]
  3. FLUTICASONE PROPIONATE/SALMETEROL [Concomitant]
  4. XOPENEX [Concomitant]
  5. LISINOPRIL [Concomitant]
  6. NEXIUM [Concomitant]
  7. FISH OIL [Concomitant]

REACTIONS (1)
  - DRUG INTOLERANCE [None]
